FAERS Safety Report 9166085 (Version 1)
Quarter: 2013Q1

REPORT INFORMATION
  Report Type: Spontaneous
  Country: PH (occurrence: PH)
  Receive Date: 20130315
  Receipt Date: 20130315
  Transmission Date: 20140127
  Serious: Yes (Death, Hospitalization)
  Sender: FDA-Public Use
  Company Number: PH-MERCK-1302PHL008932

PATIENT
  Age: 35 Year
  Sex: Female

DRUGS (3)
  1. CANCIDAS [Suspect]
     Indication: CHEMOTHERAPY
     Dosage: ABOUT 35 MG WERE GIVEN
     Route: 041
  2. LOSARTAN POTASSIUM [Concomitant]
  3. CLINDAMYCIN [Concomitant]

REACTIONS (3)
  - Heart rate increased [Fatal]
  - Dyspnoea [Fatal]
  - Generalised erythema [Fatal]
